FAERS Safety Report 11703547 (Version 2)
Quarter: 2015Q4

REPORT INFORMATION
  Report Type: Spontaneous
  Country: GB (occurrence: GB)
  Receive Date: 20151105
  Receipt Date: 20151217
  Transmission Date: 20160304
  Serious: Yes (Other)
  Sender: FDA-Public Use
  Company Number: GB-AMGEN-GBRSP2015101135

PATIENT

DRUGS (2)
  1. CORALAN [Suspect]
     Active Substance: IVABRADINE HYDROCHLORIDE
     Indication: POSTURAL ORTHOSTATIC TACHYCARDIA SYNDROME
     Dosage: UNK
     Route: 048
  2. ACICLOVIR [Concomitant]
     Active Substance: ACYCLOVIR
     Dosage: UNK

REACTIONS (8)
  - Hypothyroidism [Unknown]
  - Local swelling [Unknown]
  - Inflammation [Unknown]
  - Pain in extremity [Unknown]
  - Facial pain [Unknown]
  - Acne [Unknown]
  - Feeling abnormal [Unknown]
  - Thyroid pain [Unknown]
